FAERS Safety Report 8338710-6 (Version None)
Quarter: 2012Q2

REPORT INFORMATION
  Report Type: 
  Country: None (occurrence: None)
  Receive Date: 20120504
  Receipt Date: 20120502
  Transmission Date: 20120825
  Serious: Yes (Hospitalization, Other)
  Sender: FDA-Public Use
  Company Number: PHHY2012IE025452

PATIENT
  Age: 74 Year
  Sex: Male

DRUGS (7)
  1. PROPRANOLOL [Concomitant]
  2. LANSOPRAZOLE [Concomitant]
  3. HYDROCHLOROTHIAZIDE [Suspect]
  4. DIAZEPAM [Concomitant]
  5. TELMISARTAN [Suspect]
  6. VENLAFAXINE [Suspect]
  7. ZOLPIDEM [Concomitant]

REACTIONS (12)
  - HYPOREFLEXIA [None]
  - INAPPROPRIATE ANTIDIURETIC HORMONE SECRETION [None]
  - CONFUSIONAL STATE [None]
  - DYSARTHRIA [None]
  - HYPOKINESIA [None]
  - POLYURIA [None]
  - HYPERTONIA [None]
  - GAIT DISTURBANCE [None]
  - SOMNOLENCE [None]
  - VIITH NERVE PARALYSIS [None]
  - RESPIRATORY ALKALOSIS [None]
  - HYPONATRAEMIA [None]
